FAERS Safety Report 6115073-8 (Version None)
Quarter: 2009Q1

REPORT INFORMATION
  Report Type: 
  Country: None (occurrence: None)
  Receive Date: 20090313
  Receipt Date: 20090304
  Transmission Date: 20090719
  Serious: Yes (Hospitalization)
  Sender: FDA-Public Use
  Company Number: B0563147A

PATIENT
  Age: 75 Year
  Sex: Female

DRUGS (8)
  1. ARIXTRA [Suspect]
     Indication: BEDRIDDEN
     Dosage: 2.5MG PER DAY
     Route: 058
     Dates: start: 20080917, end: 20080927
  2. ALDACTONE [Concomitant]
     Indication: DRUG USE FOR UNKNOWN INDICATION
     Route: 065
  3. PENICILLIN G [Concomitant]
     Indication: DRUG USE FOR UNKNOWN INDICATION
     Route: 065
  4. OFLOCET [Concomitant]
     Indication: DRUG USE FOR UNKNOWN INDICATION
     Route: 065
  5. LODOZ [Concomitant]
     Indication: DRUG USE FOR UNKNOWN INDICATION
     Route: 065
  6. TAHOR [Concomitant]
     Indication: DRUG USE FOR UNKNOWN INDICATION
     Route: 065
  7. IMOVANE [Concomitant]
     Indication: DRUG USE FOR UNKNOWN INDICATION
     Route: 065
  8. NEXIUM [Concomitant]
     Indication: DRUG USE FOR UNKNOWN INDICATION
     Route: 065

REACTIONS (5)
  - ABDOMINAL PAIN [None]
  - ANAEMIA [None]
  - CIRCULATORY COLLAPSE [None]
  - MUSCLE HAEMORRHAGE [None]
  - PERITONEAL HAEMATOMA [None]
